FAERS Safety Report 6335271-8 (Version None)
Quarter: 2009Q3

REPORT INFORMATION
  Report Type: 
  Country: None (occurrence: None)
  Receive Date: 20090831
  Receipt Date: 20090825
  Transmission Date: 20100115
  Serious: Yes (Other)
  Sender: FDA-Public Use
  Company Number: JP-MERCK-0812USA01903

PATIENT
  Age: 35 Year
  Sex: Female
  Weight: 50 kg

DRUGS (2)
  1. FOSAMAX [Suspect]
     Indication: OSTEOPOROSIS
     Route: 048
     Dates: start: 20080428, end: 20081101
  2. KAMI-SHOYO-SAN [Concomitant]
     Indication: PREMATURE MENOPAUSE
     Route: 048
     Dates: start: 20080310, end: 20081101

REACTIONS (1)
  - ORAL TORUS [None]
